FAERS Safety Report 6582161-1 (Version None)
Quarter: 2010Q1

REPORT INFORMATION
  Report Type: 
  Country: None (occurrence: None)
  Receive Date: 20100212
  Receipt Date: 20100212
  Transmission Date: 20100710
  Serious: Yes (Disabling)
  Sender: FDA-Public Use
  Company Number: None

PATIENT
  Age: 41 Year
  Sex: Male
  Weight: 97.7 kg

DRUGS (3)
  1. ENBREL [Suspect]
     Indication: PSORIATIC ARTHROPATHY
     Dosage: 50MG ONCE WEEKLY SUBQ, ^MANY YEARS^
     Route: 058
  2. METHOTREXATE [Concomitant]
  3. KETOPROFEN [Concomitant]

REACTIONS (3)
  - CENTRAL NERVOUS SYSTEM INFLAMMATION [None]
  - MULTIPLE SCLEROSIS [None]
  - PARAESTHESIA [None]
